FAERS Safety Report 5425190-3 (Version None)
Quarter: 2007Q3

REPORT INFORMATION
  Report Type: 
  Country: None (occurrence: None)
  Receive Date: 20070824
  Receipt Date: 20070822
  Transmission Date: 20080115
  Serious: Yes (Other)
  Sender: FDA-Public Use
  Company Number: A0652785A

PATIENT
  Sex: Male

DRUGS (1)
  1. AQUAFRESH EXTREME CLEAN WHITENING MINT EXPERIENCE TOOTHPASTE [Suspect]

REACTIONS (4)
  - DIARRHOEA [None]
  - GASTROENTERITIS VIRAL [None]
  - MALAISE [None]
  - PHARMACEUTICAL PRODUCT COMPLAINT [None]
